FAERS Safety Report 18339160 (Version 1)
Quarter: 2020Q4

REPORT INFORMATION
  Report Type: Spontaneous
  Country: ES (occurrence: ES)
  Receive Date: 20201002
  Receipt Date: 20201002
  Transmission Date: 20210113
  Serious: Yes (Life-Threatening, Hospitalization)
  Sender: FDA-Public Use
  Company Number: ES-MYLANLABS-2020M1083135

PATIENT
  Age: 83 Year
  Sex: Female

DRUGS (4)
  1. ESPIRONOLACTONA [Interacting]
     Active Substance: SPIRONOLACTONE
     Indication: CARDIOMYOPATHY
     Dosage: || DOSIS UNIDAD FRECUENCIA: 25 MG-MILIGRAMOS || DOSIS
     Route: 048
     Dates: start: 20120227, end: 20160704
  2. TRAMADOL. [Suspect]
     Active Substance: TRAMADOL
     Indication: PAIN
     Dosage: || UNIDAD DE FRECUENCIA: 1 D?A
     Route: 048
     Dates: start: 20130528, end: 20160704
  3. LISINOPRIL. [Concomitant]
     Active Substance: LISINOPRIL
     Indication: HYPERTENSION
     Dosage: || DOSIS UNIDAD FRECUENCIA: 20 MG-MILIGRAMOS || DOSIS
     Route: 048
     Dates: start: 201109
  4. FUROSEMIDA                         /00032601/ [Interacting]
     Active Substance: FUROSEMIDE
     Indication: CARDIOMYOPATHY
     Dosage: DOSIS UNIDAD FRECUENCIA: 40 MG-MILIGRAMOS || DOSIS
     Route: 048
     Dates: start: 20090709, end: 20160704

REACTIONS (2)
  - Drug interaction [Unknown]
  - Inappropriate antidiuretic hormone secretion [Recovered/Resolved]

NARRATIVE: CASE EVENT DATE: 20160704
